FAERS Safety Report 18258691 (Version 2)
Quarter: 2020Q3

REPORT INFORMATION
  Report Type: Spontaneous
  Country: US (occurrence: US)
  Receive Date: 20200911
  Receipt Date: 20200930
  Transmission Date: 20201103
  Serious: No
  Sender: FDA-Public Use
  Company Number: US-STRONGBRIDGE BIOPHARMA-2020-STR-000218

PATIENT
  Sex: Male

DRUGS (3)
  1. KEVEYIS [Suspect]
     Active Substance: DICHLORPHENAMIDE
     Dosage: 12.5 MG, QD
     Route: 048
  2. KEVEYIS [Suspect]
     Active Substance: DICHLORPHENAMIDE
     Indication: HYPOKALAEMIA
     Dosage: 12.5 MG, QD
     Route: 048
  3. KEVEYIS [Suspect]
     Active Substance: DICHLORPHENAMIDE
     Dosage: 25 MG, QD
     Route: 048

REACTIONS (12)
  - Fatigue [Unknown]
  - Skin odour abnormal [Recovering/Resolving]
  - Fatigue [Recovering/Resolving]
  - Pain [Recovering/Resolving]
  - Wrong technique in product usage process [Unknown]
  - Feeling abnormal [Unknown]
  - Off label use [Unknown]
  - Wrong technique in product usage process [Recovering/Resolving]
  - Paraesthesia [Recovering/Resolving]
  - Tremor [Recovering/Resolving]
  - Underdose [Unknown]
  - Asthenia [Recovering/Resolving]
